FAERS Safety Report 4881998-4 (Version None)
Quarter: 2006Q1

REPORT INFORMATION
  Report Type: 
  Country: None (occurrence: None)
  Receive Date: 20060113
  Receipt Date: 20060113
  Transmission Date: 20060701
  Serious: Yes (Life-Threatening)
  Sender: FDA-Public Use
  Company Number: None

PATIENT
  Sex: Female
  Weight: 38.5557 kg

DRUGS (2)
  1. TOPAMAX SPRINKLE [Suspect]
     Indication: MIGRAINE
     Dosage: 30 MG TWICE DAILY PO
     Route: 048
  2. AMITRIPTYLINE 10 MG MYLAN [Suspect]
     Indication: MIGRAINE
     Dosage: 20 MG @ BEDTIME PO
     Route: 048

REACTIONS (4)
  - DRUG INTERACTION [None]
  - LOSS OF CONSCIOUSNESS [None]
  - MIGRAINE [None]
  - WHITE BLOOD CELL COUNT INCREASED [None]
